FAERS Safety Report 5694506-5 (Version None)
Quarter: 2008Q2

REPORT INFORMATION
  Report Type: 
  Country: None (occurrence: None)
  Receive Date: 20080404
  Receipt Date: 20080331
  Transmission Date: 20081010
  Serious: Yes (Life-Threatening, Hospitalization)
  Sender: FDA-Public Use
  Company Number: TW-WYE-H02985508

PATIENT
  Sex: Female
  Weight: 65 kg

DRUGS (11)
  1. SIROLIMUS [Suspect]
     Indication: IMMUNOSUPPRESSANT DRUG THERAPY
     Route: 048
     Dates: end: 20080201
  2. SIROLIMUS [Suspect]
     Indication: PROPHYLAXIS AGAINST TRANSPLANT REJECTION
  3. ISOSORBIDE DINITRATE [Concomitant]
     Indication: HYPERTENSION
     Route: 065
  4. ROSUVASTATIN [Concomitant]
     Indication: HYPERCHOLESTEROLAEMIA
     Route: 065
  5. BROWN MIXTURE [Concomitant]
     Indication: COUGH
     Route: 065
  6. ATENOLOL [Concomitant]
     Indication: HYPERTENSION
     Route: 065
  7. METFORMIN HCL [Concomitant]
     Indication: DIABETES MELLITUS
     Route: 065
  8. GLIMEPIRIDE [Concomitant]
     Indication: DIABETES MELLITUS
     Dosage: 2 MG, EVERY DAY BEFORE MEALS
     Route: 065
  9. CETIRIZINE HCL [Concomitant]
     Indication: RHINITIS
     Route: 065
  10. MYFORTIC [Concomitant]
     Indication: IMMUNOSUPPRESSANT DRUG THERAPY
     Dosage: 180MG/TABLET, 4 TABLETS TWICE DAILY
     Route: 065
  11. DOXAZOSIN MESYLATE [Concomitant]
     Indication: DYSURIA
     Route: 065

REACTIONS (4)
  - ACUTE RESPIRATORY DISTRESS SYNDROME [None]
  - INTERSTITIAL LUNG DISEASE [None]
  - PNEUMONIA [None]
  - RESPIRATORY FAILURE [None]
